FAERS Safety Report 16469136 (Version 4)
Quarter: 2019Q3

REPORT INFORMATION
  Report Type: Report from Study
  Country: PT (occurrence: PT)
  Receive Date: 20190624
  Receipt Date: 20190708
  Transmission Date: 20191004
  Serious: Yes (Death)
  Sender: FDA-Public Use
  Company Number: PT-EMD SERONO-E2B_90068700

PATIENT
  Age: 51 Year
  Sex: Male
  Weight: 50 kg

DRUGS (6)
  1. TRAMAL IR [Concomitant]
     Indication: NECK PAIN
     Dosage: 50 MG, 1X/DAY
     Route: 048
     Dates: start: 20190523
  2. AVELUMAB [Suspect]
     Active Substance: AVELUMAB
     Indication: SQUAMOUS CELL CARCINOMA OF HEAD AND NECK
     Dosage: DAY 1 LEAD-IN PHASE; DAYS 8, 25, AND 39 OF CRT PHASE; Q2 WEEKS DURING MAINTENANCE PHASE
     Route: 041
     Dates: start: 20181009
  3. PARACETAMOL [Concomitant]
     Active Substance: ACETAMINOPHEN
     Indication: NECK PAIN
     Dosage: 1 G, 3X/DAY
     Route: 048
     Dates: start: 20190523
  4. MAGNESONA [Concomitant]
     Indication: HYPOMAGNESAEMIA
     Dosage: UNK, 1X/DAY
     Route: 048
     Dates: start: 20181119
  5. CISPLATIN. [Suspect]
     Active Substance: CISPLATIN
     Indication: SQUAMOUS CELL CARCINOMA OF HEAD AND NECK
     Dosage: DAYS 1, 22 AND 43 OF CRT PHASE
     Route: 041
     Dates: start: 20181015
  6. BRUFEN                             /00109201/ [Concomitant]
     Active Substance: IBUPROFEN
     Indication: NECK PAIN
     Dosage: 600 MG, 2X/DAY
     Route: 048
     Dates: start: 20190523

REACTIONS (1)
  - Death [Fatal]

NARRATIVE: CASE EVENT DATE: 20190617
